FAERS Safety Report 14124539 (Version 4)
Quarter: 2024Q2

REPORT INFORMATION
  Report Type: Other
  Country: DE (occurrence: DE)
  Receive Date: 20171025
  Receipt Date: 20240401
  Transmission Date: 20240716
  Serious: Yes (Life-Threatening, Hospitalization)
  Sender: FDA-Public Use
  Company Number: DE-ROCHE-1367184

PATIENT
  Age: 72 Year
  Sex: Female
  Weight: 68 kg

DRUGS (19)
  1. XELODA [Suspect]
     Active Substance: CAPECITABINE
     Indication: Breast cancer
     Route: 048
     Dates: start: 20140128, end: 20140210
  2. XELODA [Suspect]
     Active Substance: CAPECITABINE
     Route: 048
     Dates: start: 20140218, end: 20140303
  3. XELODA [Suspect]
     Active Substance: CAPECITABINE
     Route: 048
     Dates: start: 20140311, end: 20140324
  4. XELODA [Suspect]
     Active Substance: CAPECITABINE
     Route: 048
     Dates: start: 20140401, end: 20140414
  5. XELODA [Suspect]
     Active Substance: CAPECITABINE
     Route: 048
     Dates: start: 20140422, end: 20140505
  6. XELODA [Suspect]
     Active Substance: CAPECITABINE
     Route: 048
     Dates: start: 20140513, end: 20140526
  7. XELODA [Suspect]
     Active Substance: CAPECITABINE
     Route: 048
     Dates: start: 20140603, end: 20140616
  8. XELODA [Suspect]
     Active Substance: CAPECITABINE
     Route: 048
     Dates: start: 20140624, end: 20140707
  9. XELODA [Suspect]
     Active Substance: CAPECITABINE
     Route: 048
     Dates: start: 20140715, end: 20140728
  10. XELODA [Suspect]
     Active Substance: CAPECITABINE
     Route: 048
     Dates: start: 20140805, end: 20140818
  11. XELODA [Suspect]
     Active Substance: CAPECITABINE
     Route: 048
     Dates: start: 20140826, end: 20140908
  12. XELODA [Suspect]
     Active Substance: CAPECITABINE
     Route: 048
     Dates: start: 20140916, end: 20140929
  13. XELODA [Suspect]
     Active Substance: CAPECITABINE
     Route: 048
     Dates: start: 20141007, end: 20141020
  14. XELODA [Suspect]
     Active Substance: CAPECITABINE
     Route: 048
     Dates: start: 20141028, end: 20141110
  15. XELODA [Suspect]
     Active Substance: CAPECITABINE
     Route: 048
     Dates: start: 20141118, end: 20141201
  16. XELODA [Suspect]
     Active Substance: CAPECITABINE
     Route: 048
     Dates: start: 20140311, end: 20140314
  17. XELODA [Suspect]
     Active Substance: CAPECITABINE
     Route: 048
     Dates: end: 20141201
  18. AVASTIN [Suspect]
     Active Substance: BEVACIZUMAB
     Indication: Breast cancer
     Dosage: 1000 MG
     Route: 042
     Dates: start: 20140128, end: 20140128
  19. AVASTIN [Suspect]
     Active Substance: BEVACIZUMAB
     Dosage: 1000 MG?DATE OF MOST RECENT DOSE PRIOR TO THE EVENT: 11/MAR/2014
     Route: 042
     Dates: start: 20140311

REACTIONS (1)
  - Hypertensive crisis [Recovered/Resolved]

NARRATIVE: CASE EVENT DATE: 20140313
